FAERS Safety Report 5033212-7 (Version None)
Quarter: 2006Q2

REPORT INFORMATION
  Report Type: 
  Country: None (occurrence: None)
  Receive Date: 20060622
  Receipt Date: 20060616
  Transmission Date: 20061013
  Serious: Yes (Hospitalization)
  Sender: FDA-Public Use
  Company Number: US-MERCK-0606USA03073

PATIENT
  Age: 58 Year
  Sex: Male

DRUGS (8)
  1. FOSAMAX [Suspect]
     Indication: OSTEOPOROSIS
     Route: 048
     Dates: start: 20050101
  2. ARTHROTEC [Concomitant]
     Route: 065
  3. AMITRIPTYLIN [Concomitant]
     Route: 065
  4. OXYCODONE [Concomitant]
     Route: 065
  5. CYPROHEPTADINE HYDROCHLORIDE [Concomitant]
     Route: 065
  6. QUININE SULFATE [Concomitant]
     Route: 065
  7. HYDROCODONE BITARTRATE [Concomitant]
     Route: 065
  8. HYDROXYZINE HYDROCHLORIDE [Concomitant]
     Route: 065

REACTIONS (2)
  - CONVULSION [None]
  - DYSPHAGIA [None]
